FAERS Safety Report 8297161-3 (Version None)
Quarter: 2012Q2

REPORT INFORMATION
  Report Type: 
  Country: None (occurrence: None)
  Receive Date: 20120419
  Receipt Date: 20120416
  Transmission Date: 20120825
  Serious: No
  Sender: FDA-Public Use
  Company Number: US-PFIZER INC-2012094314

PATIENT
  Sex: Female
  Weight: 62.132 kg

DRUGS (1)
  1. LO/OVRAL-28 [Suspect]
     Indication: MIGRAINE PROPHYLAXIS
     Dosage: UNK, 1X/DAY
     Route: 048

REACTIONS (1)
  - HYPOTHYROIDISM [None]
